FAERS Safety Report 5901869-1 (Version None)
Quarter: 2008Q3

REPORT INFORMATION
  Report Type: 
  Country: None (occurrence: None)
  Receive Date: 20080929
  Receipt Date: 20080708
  Transmission Date: 20090109
  Serious: Yes (Death, Other)
  Sender: FDA-Public Use
  Company Number: IT-BAYER-200822043GPV

PATIENT
  Age: 41 Year
  Sex: Male

DRUGS (12)
  1. FLUDARABINE PHOSPHATE [Suspect]
     Indication: ACUTE MYELOID LEUKAEMIA
     Route: 065
  2. CYTARABINE [Suspect]
     Indication: ACUTE MYELOID LEUKAEMIA
     Route: 065
  3. IDARUBICIN HCL [Suspect]
     Indication: ACUTE MYELOID LEUKAEMIA
     Route: 065
  4. ETOPOSIDE [Suspect]
     Indication: ACUTE MYELOID LEUKAEMIA
     Route: 065
  5. CYCLOPHOSPHAMIDE [Suspect]
     Indication: BONE MARROW CONDITIONING REGIMEN
  6. THYMOGLOBULIN [Suspect]
     Indication: BONE MARROW CONDITIONING REGIMEN
  7. METHYLPREDNISOLONE [Suspect]
     Indication: BONE MARROW CONDITIONING REGIMEN
  8. MEROPENEM [Concomitant]
     Indication: FUNGAL INFECTION
  9. ACYCLOVIR [Concomitant]
     Indication: BONE MARROW TRANSPLANT
     Route: 065
  10. LEVOFLOXACIN [Concomitant]
     Indication: BONE MARROW TRANSPLANT
     Route: 065
  11. CYCLOSPORINE [Concomitant]
     Indication: IMMUNOSUPPRESSANT DRUG THERAPY
  12. METHOTREXATE [Concomitant]
     Indication: IMMUNOSUPPRESSANT DRUG THERAPY

REACTIONS (4)
  - APLASIA [None]
  - BACTERIAL SEPSIS [None]
  - CEREBRAL FUNGAL INFECTION [None]
  - FUNGAL RHINITIS [None]
